FAERS Safety Report 5385394-5 (Version None)
Quarter: 2007Q3

REPORT INFORMATION
  Report Type: 
  Country: None (occurrence: None)
  Receive Date: 20070709
  Receipt Date: 20070622
  Transmission Date: 20080115
  Serious: Yes (Death)
  Sender: FDA-Public Use
  Company Number: 158232ISR

PATIENT
  Age: 71 Year
  Sex: Female

DRUGS (3)
  1. FLUOROURACIL [Suspect]
     Indication: CHEMOTHERAPY
     Dosage: (CYCLIC) INTRAVENOUS DRIP
     Route: 041
     Dates: start: 20060904, end: 20070203
  2. OXALIPLATIN [Suspect]
     Indication: NEOPLASM
     Dosage: (CYCLIC) INTRAVENOUS DRIP
     Route: 041
     Dates: start: 20060904, end: 20070203
  3. FOLINIC ACID [Suspect]
     Indication: NEOPLASM
     Dosage: (CYCLIC)
     Dates: start: 20060904, end: 20070203

REACTIONS (3)
  - ACUTE RESPIRATORY DISTRESS SYNDROME [None]
  - PSEUDOMONAS INFECTION [None]
  - PULMONARY FIBROSIS [None]
